FAERS Safety Report 23301741 (Version 4)
Quarter: 2025Q1

REPORT INFORMATION
  Report Type: Spontaneous
  Country: US (occurrence: US)
  Receive Date: 20231215
  Receipt Date: 20250310
  Transmission Date: 20250409
  Serious: No
  Sender: SANOFI AVENTIS
  Company Number: US-SA-SAC20231211001401

PATIENT
  Age: 60 Year
  Sex: Female
  Weight: 113.38 kg

DRUGS (6)
  1. DUPIXENT [Suspect]
     Active Substance: DUPILUMAB
     Indication: Nasal polyps
     Dosage: 300 MG, QOW
     Route: 058
  2. DUPIXENT [Suspect]
     Active Substance: DUPILUMAB
     Indication: Nasal polyps
     Dosage: 300 MG, QOW
     Route: 058
  3. SINGULAIR [Concomitant]
     Active Substance: MONTELUKAST SODIUM
  4. ACRIVASTINE [Concomitant]
     Active Substance: ACRIVASTINE
  5. OZEMPIC [Concomitant]
     Active Substance: SEMAGLUTIDE
  6. BENADRYL [Concomitant]
     Active Substance: DIPHENHYDRAMINE HYDROCHLORIDE

REACTIONS (6)
  - Arthropod bite [Unknown]
  - Weight decreased [Unknown]
  - Excessive skin [Unknown]
  - Urticaria [Unknown]
  - Pruritus [Unknown]
  - Injection site pain [Unknown]
